FAERS Safety Report 12932971 (Version 3)
Quarter: 2017Q1

REPORT INFORMATION
  Report Type: Report from Study
  Country: FR (occurrence: FR)
  Receive Date: 20161111
  Receipt Date: 20170110
  Transmission Date: 20170428
  Serious: Yes (Life-Threatening, Hospitalization, Disabling, Other)
  Sender: FDA-Public Use
  Company Number: FR-PFIZER INC-2016428691

PATIENT
  Age: 67 Year
  Sex: Female
  Weight: 80 kg

DRUGS (4)
  1. FASLODEX [Suspect]
     Active Substance: FULVESTRANT
     Indication: BREAST CANCER METASTATIC
     Dosage: 500 MG, MONTHLY
     Route: 030
  2. DUPHALAC [Concomitant]
     Active Substance: LACTULOSE
     Dosage: 4 DF, DAILY
     Route: 048
  3. PALBOCICLIB [Suspect]
     Active Substance: PALBOCICLIB
     Indication: BREAST CANCER METASTATIC
     Dosage: 125 MG, CYCLIC, DAILY, 3 WEEKS ON/1 WEEK OFF
     Route: 048
     Dates: start: 20160816, end: 20161227
  4. SKENAN [Concomitant]
     Active Substance: MORPHINE SULFATE
     Indication: PAIN
     Dosage: 10 MG, DAILY
     Route: 048

REACTIONS (6)
  - Thrombocytopenia [Not Recovered/Not Resolved]
  - Pruritus [Not Recovered/Not Resolved]
  - Ischaemic stroke [Recovered/Resolved with Sequelae]
  - Macule [Not Recovered/Not Resolved]
  - Renal failure [Unknown]
  - Neutropenia [Not Recovered/Not Resolved]

NARRATIVE: CASE EVENT DATE: 20160908
